FAERS Safety Report 15478818 (Version 1)
Quarter: 2018Q4

REPORT INFORMATION
  Report Type: Spontaneous
  Country: AU (occurrence: AU)
  Receive Date: 20181009
  Receipt Date: 20181009
  Transmission Date: 20190205
  Serious: Yes (Other)
  Sender: FDA-Public Use
  Company Number: AU-009507513-1810AUS002284

PATIENT
  Age: 15 Year
  Sex: Male

DRUGS (1)
  1. SINGULAIR [Suspect]
     Active Substance: MONTELUKAST SODIUM
     Dosage: 5 MG, UNK
     Route: 048
     Dates: start: 20130501, end: 20140901

REACTIONS (8)
  - Depression [Recovering/Resolving]
  - Nightmare [Recovering/Resolving]
  - Insomnia [Recovering/Resolving]
  - Sleep terror [Recovering/Resolving]
  - Hallucination [Recovering/Resolving]
  - Suicidal ideation [Recovering/Resolving]
  - Anxiety [Recovering/Resolving]
  - Emotional disorder [Recovering/Resolving]

NARRATIVE: CASE EVENT DATE: 20130601
